FAERS Safety Report 8558146-2 (Version None)
Quarter: 2012Q3

REPORT INFORMATION
  Report Type: 
  Country: None (occurrence: None)
  Receive Date: 20120727
  Receipt Date: 20120727
  Transmission Date: 20120928
  Serious: Yes (Hospitalization, Other)
  Sender: FDA-Public Use
  Company Number: None

PATIENT
  Sex: Female

DRUGS (7)
  1. CINTHROID [Concomitant]
  2. PLAVIX [Concomitant]
  3. LASIX [Concomitant]
  4. NEXIUM [Concomitant]
  5. ISMO [Suspect]
     Indication: VEIN DISORDER
     Dosage: 120MG ONCE A DAY PO
     Route: 048
  6. NORVASC [Concomitant]
  7. FOLIC ACID [Concomitant]

REACTIONS (4)
  - VOMITING [None]
  - DIARRHOEA [None]
  - ABDOMINAL DISCOMFORT [None]
  - HEADACHE [None]
